FAERS Safety Report 20135889 (Version 1)
Quarter: 2021Q4

REPORT INFORMATION
  Report Type: Spontaneous
  Country: FR (occurrence: FR)
  Receive Date: 20211201
  Receipt Date: 20211201
  Transmission Date: 20220303
  Serious: Yes (Other)
  Sender: FDA-Public Use
  Company Number: None

PATIENT
  Age: 24 Year
  Sex: Female

DRUGS (3)
  1. XANAX [Suspect]
     Active Substance: ALPRAZOLAM
     Dosage: UNK
  2. AMPHETAMINE [Suspect]
     Active Substance: AMPHETAMINE
  3. MIDOMAFETAMINE [Suspect]
     Active Substance: MIDOMAFETAMINE

REACTIONS (4)
  - Suicide attempt [Unknown]
  - Tachycardia [Recovered/Resolved]
  - Somnolence [Recovered/Resolved]
  - Hypertension [Recovered/Resolved]
